FAERS Safety Report 15957143 (Version 1)
Quarter: 2019Q1

REPORT INFORMATION
  Report Type: Spontaneous
  Country: US (occurrence: US)
  Receive Date: 20190213
  Receipt Date: 20190213
  Transmission Date: 20190417
  Serious: No
  Sender: FDA-Public Use
  Company Number: US-BAYER-2019-030071

PATIENT
  Age: 24 Year
  Sex: Female

DRUGS (6)
  1. GABAPENTIN. [Suspect]
     Active Substance: GABAPENTIN
  2. CYMBALTA [Suspect]
     Active Substance: DULOXETINE HYDROCHLORIDE
  3. CYCLOBENZAPRINE. [Suspect]
     Active Substance: CYCLOBENZAPRINE
  4. LYRICA [Concomitant]
     Active Substance: PREGABALIN
     Dosage: 1 DF, BID
     Route: 048
  5. ALEVE [Suspect]
     Active Substance: NAPROXEN SODIUM
     Indication: PAIN
     Dosage: UNK
  6. PREDNISONE. [Suspect]
     Active Substance: PREDNISONE

REACTIONS (6)
  - Back pain [Unknown]
  - Nausea [Unknown]
  - Peripheral coldness [Unknown]
  - Musculoskeletal chest pain [Unknown]
  - Skin discolouration [Unknown]
  - Drug ineffective [Unknown]
